FAERS Safety Report 18918532 (Version 2)
Quarter: 2021Q1

REPORT INFORMATION
  Report Type: Spontaneous
  Country: CA (occurrence: CA)
  Receive Date: 20210220
  Receipt Date: 20210226
  Transmission Date: 20210420
  Serious: Yes (Hospitalization, Other)
  Sender: FDA-Public Use
  Company Number: CA-VISTAPHARM, INC.-VER202102-000741

PATIENT
  Sex: Male
  Weight: 2.2 kg

DRUGS (1)
  1. HYDROCODONE AND ACETAMINOPHEN [Suspect]
     Active Substance: ACETAMINOPHEN\HYDROCODONE
     Route: 064

REACTIONS (7)
  - Foetal heart rate deceleration abnormality [Unknown]
  - Encephalopathy neonatal [Recovered/Resolved]
  - Metabolic acidosis [Unknown]
  - Foetal exposure during pregnancy [Unknown]
  - Hypoglycaemia [Recovered/Resolved]
  - Drug-induced liver injury [Recovered/Resolved]
  - Neonatal toxicity [Recovered/Resolved]
